FAERS Safety Report 9784573 (Version 1)
Quarter: 2013Q4

REPORT INFORMATION
  Report Type: Spontaneous
  Country: CO (occurrence: CO)
  Receive Date: 20131226
  Receipt Date: 20131226
  Transmission Date: 20140711
  Serious: Yes (Other)
  Sender: FDA-Public Use
  Company Number: CO-UCBSA-106791

PATIENT
  Sex: Male

DRUGS (2)
  1. NEUPRO [Suspect]
     Indication: PARKINSON^S DISEASE
     Dosage: DAILY DOSE: 4 MG
     Route: 062
     Dates: start: 20130506, end: 20131006
  2. STALEVO [Concomitant]
     Dosage: EVERY 6 HOURS, VERY OFTEN, STARTED 6 HOURS BEFORE

REACTIONS (3)
  - Hallucination, auditory [Recovered/Resolved]
  - Irritability [Recovering/Resolving]
  - Aggression [Recovering/Resolving]
